FAERS Safety Report 19499348 (Version 2)
Quarter: 2021Q3

REPORT INFORMATION
  Report Type: Spontaneous
  Country: US (occurrence: US)
  Receive Date: 20210707
  Receipt Date: 20210709
  Transmission Date: 20211014
  Serious: Yes (Other)
  Sender: FDA-Public Use
  Company Number: US-SA-2021SA217726

PATIENT
  Age: 73 Year
  Sex: Male

DRUGS (3)
  1. ALLEGRA ALLERGY [Suspect]
     Active Substance: FEXOFENADINE HYDROCHLORIDE
     Indication: HYPERSENSITIVITY
     Dosage: 180 MG, QD
     Dates: start: 20210628
  2. CLARITIN [Concomitant]
     Active Substance: LORATADINE
     Indication: CHRONIC SINUSITIS
     Dosage: UNK
  3. ZYRTEC [Concomitant]
     Active Substance: CETIRIZINE HYDROCHLORIDE
     Dosage: UNK

REACTIONS (16)
  - Retching [Unknown]
  - Feeling abnormal [Unknown]
  - Productive cough [Unknown]
  - Chest discomfort [Unknown]
  - Anxiety [Unknown]
  - Cough [Unknown]
  - Upper-airway cough syndrome [Unknown]
  - Therapeutic response shortened [Unknown]
  - Obstructive airways disorder [Unknown]
  - Wheezing [Unknown]
  - Orthopnoea [Unknown]
  - Sinusitis [Unknown]
  - Insomnia [Unknown]
  - Dyspnoea [Unknown]
  - Choking [Unknown]
  - Middle insomnia [Unknown]

NARRATIVE: CASE EVENT DATE: 20210628
